FAERS Safety Report 9089645 (Version 1)
Quarter: 2013Q1

REPORT INFORMATION
  Report Type: Spontaneous
  Country: US (occurrence: US)
  Receive Date: 20130201
  Receipt Date: 20130201
  Transmission Date: 20140127
  Serious: No
  Sender: FDA-Public Use
  Company Number: US-PFIZER INC-2013042548

PATIENT
  Age: 46 Year
  Sex: Female
  Weight: 63.49 kg

DRUGS (2)
  1. PRISTIQ [Suspect]
     Indication: DEPRESSION
     Dosage: 50 MG, DAILY
     Dates: start: 201011
  2. PRISTIQ [Suspect]
     Indication: ANXIETY
     Dosage: 50 MG, ALTERNATE DAY
     Dates: start: 201301

REACTIONS (3)
  - Withdrawal syndrome [Not Recovered/Not Resolved]
  - Intentional drug misuse [Unknown]
  - Off label use [Not Recovered/Not Resolved]
